FAERS Safety Report 7314556-2 (Version None)
Quarter: 2011Q1

REPORT INFORMATION
  Report Type: 
  Country: None (occurrence: None)
  Receive Date: 20110225
  Receipt Date: 20101018
  Transmission Date: 20110831
  Serious: No
  Sender: FDA-Public Use
  Company Number: US-MYLANLABS-2010S1018014

PATIENT
  Sex: Male

DRUGS (1)
  1. AMNESTEEM [Suspect]
     Route: 048
     Dates: start: 20100414, end: 20100929

REACTIONS (2)
  - TREATMENT NONCOMPLIANCE [None]
  - DRUG INEFFECTIVE [None]
